FAERS Safety Report 5762376-2 (Version None)
Quarter: 2008Q2

REPORT INFORMATION
  Report Type: 
  Country: None (occurrence: None)
  Receive Date: 20080609
  Receipt Date: 20080530
  Transmission Date: 20081010
  Serious: Yes (Hospitalization)
  Sender: FDA-Public Use
  Company Number: US-ROCHE-567775

PATIENT
  Age: 49 Year
  Sex: Male

DRUGS (12)
  1. PEGASYS [Suspect]
     Indication: HEPATITIS C
     Route: 058
     Dates: end: 20050101
  2. PEGASYS [Suspect]
     Route: 058
  3. COPEGUS [Suspect]
     Indication: HEPATITIS C
     Route: 065
     Dates: end: 20050101
  4. COPEGUS [Suspect]
     Route: 065
  5. LEXAPRO [Concomitant]
  6. ALPRAZOLAM [Concomitant]
  7. CYCLOBENZAPRINE HCL [Concomitant]
  8. MARINOL [Concomitant]
     Indication: NAUSEA
  9. MARINOL [Concomitant]
  10. MARINOL [Concomitant]
  11. MARINOL [Concomitant]
  12. MARINOL [Concomitant]

REACTIONS (4)
  - HEPATITIS C [None]
  - INSOMNIA [None]
  - MENTAL DISORDER [None]
  - MUSCLE SPASMS [None]
